FAERS Safety Report 7156966-2 (Version None)
Quarter: 2010Q4

REPORT INFORMATION
  Report Type: 
  Country: None (occurrence: None)
  Receive Date: 20101214
  Receipt Date: 20100118
  Transmission Date: 20110411
  Serious: No
  Sender: FDA-Public Use
  Company Number: US-ASTRAZENECA-2010SE02487

PATIENT
  Age: 47 Year
  Sex: Male
  Weight: 97.5 kg

DRUGS (4)
  1. CRESTOR [Suspect]
     Route: 048
     Dates: start: 20100104
  2. ACTOS [Concomitant]
     Indication: DIABETES MELLITUS
  3. GLYBURIDE [Concomitant]
     Indication: DIABETES MELLITUS
  4. LOTREL [Concomitant]
     Indication: HYPERTENSION

REACTIONS (1)
  - ORAL PAIN [None]
